FAERS Safety Report 16137176 (Version 4)
Quarter: 2019Q3

REPORT INFORMATION
  Report Type: Report from Study
  Country: GB (occurrence: GB)
  Receive Date: 20190329
  Receipt Date: 20190930
  Transmission Date: 20191004
  Serious: Yes (Hospitalization, Other)
  Sender: FDA-Public Use
  Company Number: PHHY2019GB069324

PATIENT
  Sex: Female

DRUGS (2)
  1. COSENTYX [Suspect]
     Active Substance: SECUKINUMAB
     Indication: ANKYLOSING SPONDYLITIS
     Dosage: 150 MG, QMO (PREFILLED PEN)
     Route: 058
     Dates: start: 20170925
  2. COSENTYX [Suspect]
     Active Substance: SECUKINUMAB
     Dosage: 150 MG, QMO (PREFILLED PEN)
     Route: 058
     Dates: start: 20190924

REACTIONS (3)
  - Hypoacusis [Unknown]
  - Hip fracture [Unknown]
  - Infection [Recovered/Resolved]
